FAERS Safety Report 9792159 (Version 1)
Quarter: 2013Q4

REPORT INFORMATION
  Report Type: Spontaneous
  Country: US (occurrence: None)
  Receive Date: 20131230
  Receipt Date: 20131230
  Transmission Date: 20140711
  Serious: Yes (Hospitalization, Disabling, Other)
  Sender: FDA-Public Use
  Company Number: KAD201312-001757

PATIENT
  Age: 62 Year
  Sex: Male
  Weight: 72 kg

DRUGS (15)
  1. RIBAVIRIN (RIBAVIRIN) [Suspect]
     Indication: HEPATITIS C
     Route: 048
     Dates: start: 20120910, end: 20131011
  2. GS-7977 [Suspect]
     Indication: HEPATITIS C
     Route: 048
     Dates: start: 20130415, end: 20131006
  3. PEGINTERFERON (PEGINTERFERON) [Suspect]
     Indication: HEPATITIS C
     Route: 058
     Dates: start: 20120910, end: 20131006
  4. SOFOSBUVIR [Concomitant]
  5. PEGASYS (PEGINTERFERON ALFA-2A) [Concomitant]
  6. PROGRAF (TACROLIMUS) [Concomitant]
  7. LASIX (FUROSEMIDE) [Concomitant]
  8. ADALAT CC (NIFEDIPINE) [Concomitant]
  9. ATENOLOL [Concomitant]
  10. NIFEDIPINE [Concomitant]
  11. VITAMIN D (CHOLECALCIFEROL) [Concomitant]
  12. PROCRIT (EPOETIN ALFA) [Concomitant]
  13. FLONASE (FLUTICASONE PROPIONATE) [Concomitant]
  14. PREVACID (LANSOPRAZOLE) [Concomitant]
  15. CENTRUM SILVER (MULTIVITAMIN) [Concomitant]

REACTIONS (9)
  - Dyspnoea [None]
  - Anaemia [None]
  - Pleural effusion [None]
  - Renal failure chronic [None]
  - Osteoarthritis [None]
  - Dysphagia [None]
  - Ascites [None]
  - Chest discomfort [None]
  - Fluid overload [None]
